FAERS Safety Report 13272711 (Version 1)
Quarter: 2017Q1

REPORT INFORMATION
  Report Type: Spontaneous
  Country: US (occurrence: US)
  Receive Date: 20170226
  Receipt Date: 20170226
  Transmission Date: 20170428
  Serious: Yes (Other)
  Sender: FDA-Public Use
  Company Number: None

PATIENT
  Age: 30 Year
  Sex: Female
  Weight: 79.45 kg

DRUGS (3)
  1. PARAGARD T 380A [Suspect]
     Active Substance: COPPER
  2. IBUPOROFEN [Concomitant]
  3. DAILY VITAMINS ^ONE A DAY^ [Concomitant]
     Active Substance: VITAMINS

REACTIONS (4)
  - Abdominal pain upper [None]
  - Haemorrhage [None]
  - Neck pain [None]
  - Vaginal haemorrhage [None]

NARRATIVE: CASE EVENT DATE: 20150830
